FAERS Safety Report 9052949 (Version 1)
Quarter: 2013Q1

REPORT INFORMATION
  Report Type: Spontaneous
  Country: US (occurrence: US)
  Receive Date: 20130208
  Receipt Date: 20130208
  Transmission Date: 20140127
  Serious: Yes (Other)
  Sender: FDA-Public Use
  Company Number: US-AMGEN-USASP2013006622

PATIENT
  Age: 56 Year
  Sex: Male

DRUGS (4)
  1. ETANERCEPT [Suspect]
     Indication: RHEUMATOID ARTHRITIS
     Dosage: 50 MG, QWK
     Route: 058
  2. PREDNISONE [Concomitant]
     Dosage: 5 MG, QD
  3. HYDROXYCHLOROQUINE [Concomitant]
     Dosage: 200 MG, BID
  4. SULFASALAZINE [Concomitant]
     Dosage: 1000 MG, BID

REACTIONS (4)
  - Lung disorder [Recovering/Resolving]
  - Hypersensitivity [Recovering/Resolving]
  - Pulmonary fibrosis [Recovering/Resolving]
  - Dyspnoea exertional [Recovering/Resolving]
